FAERS Safety Report 19662164 (Version 1)
Quarter: 2021Q3

REPORT INFORMATION
  Report Type: Report from Study
  Country: AU (occurrence: AU)
  Receive Date: 20210805
  Receipt Date: 20210805
  Transmission Date: 20211014
  Serious: Yes (Hospitalization)
  Sender: FDA-Public Use
  Company Number: AU-ROCHE-2881653

PATIENT
  Age: 58 Year
  Sex: Female

DRUGS (17)
  1. METOCLOPRAMIDE. [Concomitant]
     Active Substance: METOCLOPRAMIDE
     Dosage: WHEN REQUIRE FOR NAUSEA OR VOMMITTING
     Route: 048
     Dates: start: 20210317
  2. ENDONE [Concomitant]
     Active Substance: OXYCODONE HYDROCHLORIDE
     Route: 048
     Dates: start: 20210615
  3. ADAVOSERTIB. [Concomitant]
     Active Substance: ADAVOSERTIB
     Dosage: ON DAY 1 TO DAY 5 AND ON DAY 8 TO 15 FOR EACH 21 DAYS TAKE WITH OR WITHOUT FOOD
     Route: 048
     Dates: start: 20201223
  4. SUMATRIPTAN. [Concomitant]
     Active Substance: SUMATRIPTAN
     Dosage: WHEN REQUIRE FOR MIGRANE
     Route: 048
  5. COBIMETINIB. [Suspect]
     Active Substance: COBIMETINIB
     Indication: OVARIAN CANCER
     Dosage: DATE OF MOST TREATMENT OF COBIMETINIB  RECEIVED PRIOR TO ADVERSE EVENT ONSET: ON 15/JUL/2021?SWALLOW
     Route: 048
     Dates: start: 20210616
  6. OXYBUPROCAINE [Concomitant]
     Active Substance: BENOXINATE
     Dosage: 1 DROP EACH EYE ONCE, INSTIL 1 DROP INTO EYE FOR ANAESTHESIA
     Route: 004
     Dates: start: 20210611
  7. ADAVOSERTIB. [Concomitant]
     Active Substance: ADAVOSERTIB
     Dosage: ON DAY 1 TO DAY 5 AND ON DAY 8 TO 15 FOR EACH 21 DAYS TAKE WITH OR WITHOUT FOOD
     Route: 048
     Dates: start: 20201202
  8. TROPICAMIDE. [Concomitant]
     Active Substance: TROPICAMIDE
     Dosage: 1 DROP EACH EYE ONCE REFRIGERATE DO NOT FREEZE PROTECT FROM LIGHT
     Dates: start: 20210611
  9. ATEZOLIZUMAB. [Suspect]
     Active Substance: ATEZOLIZUMAB
     Indication: OVARIAN CANCER
     Route: 041
     Dates: start: 20210715, end: 20210715
  10. PREGABALIN. [Concomitant]
     Active Substance: PREGABALIN
     Route: 048
     Dates: start: 20210714
  11. COLOXYL WITH SENNA [Concomitant]
     Active Substance: DOCUSATE SODIUM\SENNOSIDES A AND B
     Dosage: WHEN REQUIRED FOR CONSTIPATION
     Route: 048
     Dates: start: 20200908
  12. OXYBUPROCAINE [Concomitant]
     Active Substance: BENOXINATE
     Dosage: 1 DROP EACH EYE ONCE, INSTIL 1 DROP INTO EYE FOR ANAESTHESIA
     Dates: start: 20210713
  13. BEVACIZUMAB. [Suspect]
     Active Substance: BEVACIZUMAB
     Indication: OVARIAN CANCER
     Dosage: DATE OF MOST RECENT DOSE BEVACIZUMAB PRIOR TO SERIOUS ADVERSE EVENT ONSET ON 15/JUL/2021
     Route: 042
     Dates: start: 20210616, end: 20210715
  14. OXYCONTIN [Concomitant]
     Active Substance: OXYCODONE HYDROCHLORIDE
     Dosage: MODIFIED RELEASE TABLET
     Route: 048
     Dates: start: 20210714
  15. MAGNESIUM ASPARTATE [Concomitant]
     Active Substance: MAGNESIUM ASPARTATE
     Route: 048
     Dates: start: 20210629
  16. ADAVOSERTIB. [Concomitant]
     Active Substance: ADAVOSERTIB
     Dosage: ON DAY 1 TO DAY 5 AND ON DAY 8 TO 15 FOR EACH 21 DAYS TAKE WITH OR WITHOUT FOOD
     Route: 048
     Dates: start: 20210131
  17. TROPICAMIDE. [Concomitant]
     Active Substance: TROPICAMIDE
     Dosage: 1 DROP EACH EYE ONCE REFRIGERATE DO NOT FREEZE PROTECT FROM LIGHT
     Dates: start: 20210713

REACTIONS (1)
  - Pyrexia [Recovered/Resolved]

NARRATIVE: CASE EVENT DATE: 20210729
